FAERS Safety Report 21256579 (Version 1)
Quarter: 2022Q3

REPORT INFORMATION
  Report Type: Spontaneous
  Country: NO (occurrence: NO)
  Receive Date: 20220826
  Receipt Date: 20220826
  Transmission Date: 20221027
  Serious: Yes (Other)
  Sender: FDA-Public Use
  Company Number: NO-BAXTER-2022BAX017930

PATIENT
  Age: 67 Year
  Sex: Male

DRUGS (9)
  1. BUPIVACAINE [Suspect]
     Active Substance: BUPIVACAINE
     Indication: Nerve block
     Dosage: 5 MG/ML, 5 ML OF A 1:1
     Route: 056
  2. BUPIVACAINE [Suspect]
     Active Substance: BUPIVACAINE
     Indication: Anaesthesia
  3. XYLOCAINE WITH EPINEPHRINE [Suspect]
     Active Substance: EPINEPHRINE BITARTRATE\LIDOCAINE HYDROCHLORIDE
     Indication: Nerve block
     Dosage: 5 ML OF A 1:1 MIXTURE OF 2% XYLOCAINE CONTAINING ADRENALINE (1:200,000)
     Route: 056
  4. XYLOCAINE WITH EPINEPHRINE [Suspect]
     Active Substance: EPINEPHRINE BITARTRATE\LIDOCAINE HYDROCHLORIDE
     Indication: Anaesthesia
  5. ASPIRIN [Concomitant]
     Active Substance: ASPIRIN
     Dosage: 75 MG ONCE DAILY
     Route: 065
  6. ATORVASTATIN [Concomitant]
     Active Substance: ATORVASTATIN
     Dosage: 40 MG ONCE DAILY
     Route: 065
  7. BRILLIANT BLUE G [Concomitant]
     Active Substance: BRILLIANT BLUE G
     Dosage: CONTAINING DYE, (ILM-BLUE (R); D.O.R.C., ZUIDLAND, THE NETHERLANDS)
     Route: 065
  8. BSS [Concomitant]
     Active Substance: CALCIUM CHLORIDE\MAGNESIUM CHLORIDE\POTASSIUM CHLORIDE\SODIUM ACETATE\SODIUM CHLORIDE\SODIUM CITRATE
     Indication: Eye irrigation
     Dosage: IRRIGATING SOLUTION
     Route: 031
  9. GENTAMICIN [Concomitant]
     Active Substance: GENTAMICIN
     Dosage: 0.2 MG
     Route: 057

REACTIONS (1)
  - Retinal artery occlusion [Recovering/Resolving]
